FAERS Safety Report 18455236 (Version 1)
Quarter: 2020Q4

REPORT INFORMATION
  Report Type: Spontaneous
  Country: US (occurrence: US)
  Receive Date: 20201103
  Receipt Date: 20201103
  Transmission Date: 20210114
  Serious: Yes (Disabling, Other)
  Sender: FDA-Public Use
  Company Number: US-SA-2020SA301250

PATIENT

DRUGS (1)
  1. GOLD BOND ORIGINAL STRENGTH POWDER [Suspect]
     Active Substance: MENTHOL\ZINC OXIDE
     Dosage: UNK
     Dates: start: 1961, end: 2008

REACTIONS (8)
  - Disability [Unknown]
  - Anxiety [Unknown]
  - Anhedonia [Unknown]
  - Injury [Unknown]
  - Loss of personal independence in daily activities [Unknown]
  - Pain [Unknown]
  - Peritoneal mesothelioma malignant [Unknown]
  - Occupational exposure to product [Unknown]

NARRATIVE: CASE EVENT DATE: 20200513
